FAERS Safety Report 13580833 (Version 1)
Quarter: 2017Q2

REPORT INFORMATION
  Report Type: Spontaneous
  Country: IL (occurrence: IL)
  Receive Date: 20170525
  Receipt Date: 20170525
  Transmission Date: 20170830
  Serious: Yes (Other)
  Sender: FDA-Public Use
  Company Number: IL-UNICHEM LABORATORIES LIMITED-UCM201705-000140

PATIENT
  Age: 38 Year
  Sex: Female

DRUGS (5)
  1. TOPIRAMATE. [Suspect]
     Active Substance: TOPIRAMATE
     Indication: EPILEPSY
  2. CARBAMAZEPINE. [Suspect]
     Active Substance: CARBAMAZEPINE
  3. CLOBAZAM [Suspect]
     Active Substance: CLOBAZAM
  4. LEVETIRACETAM. [Concomitant]
     Active Substance: LEVETIRACETAM
  5. DIVALPROEX SODIUM. [Suspect]
     Active Substance: DIVALPROEX SODIUM
     Indication: EPILEPSY

REACTIONS (10)
  - Fall [Unknown]
  - Asterixis [Unknown]
  - Disturbance in attention [Recovered/Resolved]
  - Hepatic enzyme increased [Unknown]
  - Drug ineffective [Unknown]
  - Drug interaction [Unknown]
  - Encephalopathy [Unknown]
  - Gait disturbance [Recovered/Resolved]
  - Mental impairment [Recovered/Resolved]
  - Hyperammonaemia [Recovered/Resolved]
